FAERS Safety Report 6155545-3 (Version None)
Quarter: 2009Q2

REPORT INFORMATION
  Report Type: 
  Country: None (occurrence: None)
  Receive Date: 20090415
  Receipt Date: 20090403
  Transmission Date: 20091009
  Serious: Yes (Death)
  Sender: FDA-Public Use
  Company Number: JP-PFIZER INC-2009194883

PATIENT

DRUGS (5)
  1. SUNITINIB MALATE [Suspect]
     Indication: RENAL CELL CARCINOMA
     Dosage: 50 MG, DAILY, TDD 50 MG
     Route: 048
     Dates: start: 20090225
  2. BLOPRESS [Concomitant]
     Route: 048
  3. CONIEL [Concomitant]
     Route: 048
  4. AMOBAN [Concomitant]
     Route: 048
  5. MAGNESIUM OXIDE [Concomitant]
     Route: 048

REACTIONS (1)
  - BRAIN HERNIATION [None]
